FAERS Safety Report 8435800-4 (Version None)
Quarter: 2012Q2

REPORT INFORMATION
  Report Type: 
  Country: None (occurrence: None)
  Receive Date: 20120608
  Receipt Date: 20120528
  Transmission Date: 20120825
  Serious: Yes (Hospitalization)
  Sender: FDA-Public Use
  Company Number: ENTC2012-0232

PATIENT
  Age: 73 Year
  Sex: Male

DRUGS (3)
  1. STALEVO 50 [Suspect]
     Indication: PARKINSON'S DISEASE
     Dosage: SEE IMAGE: ORAL
     Route: 048
     Dates: start: 20120401, end: 20120401
  2. STALEVO 50 [Suspect]
     Indication: PARKINSON'S DISEASE
     Dosage: SEE IMAGE: ORAL
     Route: 048
     Dates: start: 20120401
  3. STALEVO 50 [Suspect]
     Indication: PARKINSON'S DISEASE
     Dosage: SEE IMAGE: ORAL
     Route: 048
     Dates: start: 20120301

REACTIONS (5)
  - JOINT INJURY [None]
  - GAIT DISTURBANCE [None]
  - SENILE DEMENTIA [None]
  - FALL [None]
  - MUSCULOSKELETAL STIFFNESS [None]
